FAERS Safety Report 8367567-2 (Version None)
Quarter: 2012Q1

REPORT INFORMATION
  Report Type: 
  Country: None (occurrence: None)
  Receive Date: 20120323
  Receipt Date: 20111110
  Transmission Date: 20120608
  Serious: Yes (Life-Threatening, Hospitalization)
  Sender: FDA-Public Use
  Company Number: 163-21880-11111680

PATIENT
  Age: 50 Year
  Sex: Male

DRUGS (11)
  1. REVLIMID [Suspect]
     Indication: MULTIPLE MYELOMA
     Dosage: SEE IMAGE
     Route: 048
     Dates: start: 20110825, end: 20110101
  2. REVLIMID [Suspect]
     Indication: MULTIPLE MYELOMA
     Dosage: SEE IMAGE
     Route: 048
     Dates: start: 20100801, end: 20100101
  3. REVLIMID [Suspect]
     Indication: MULTIPLE MYELOMA
     Dosage: SEE IMAGE
     Route: 048
     Dates: start: 20111101
  4. REVLIMID [Suspect]
     Indication: MULTIPLE MYELOMA
     Dosage: SEE IMAGE
     Route: 048
     Dates: start: 20100701, end: 20100801
  5. AMBIEN [Concomitant]
  6. COLAZAL [Concomitant]
  7. GLUCOSAMINE (GLUCOSAMINE) [Concomitant]
  8. ZOMETA [Concomitant]
  9. VITAMIN D [Concomitant]
  10. DECADRON [Concomitant]
  11. CALCIUM CARBONATE [Concomitant]

REACTIONS (1)
  - PULMONARY EMBOLISM [None]
